FAERS Safety Report 10426282 (Version 1)
Quarter: 2014Q3

REPORT INFORMATION
  Report Type: Spontaneous
  Country: US (occurrence: None)
  Receive Date: 20140725
  Receipt Date: 20140725
  Transmission Date: 20150326
  Serious: No
  Sender: FDA-Public Use
  Company Number: AP356-00964-SPO-US

PATIENT
  Age: 47 Year
  Sex: Female

DRUGS (3)
  1. BELVIQ [Suspect]
     Active Substance: LORCASERIN HYDROCHLORIDE
     Indication: WEIGHT DECREASED
     Dosage: 20 MG, 2 IN 1 D, ORAL
     Route: 048
     Dates: start: 201406, end: 20140625
  2. ANTIMALARIALS (ANTIMALARIALS) [Concomitant]
  3. PAIN MEDICATIONS (PARACETAMOL) [Concomitant]

REACTIONS (1)
  - Parosmia [None]

NARRATIVE: CASE EVENT DATE: 201406
